FAERS Safety Report 8401543-6 (Version None)
Quarter: 2012Q2

REPORT INFORMATION
  Report Type: 
  Country: None (occurrence: None)
  Receive Date: 20120525
  Receipt Date: 20120511
  Transmission Date: 20120825
  Serious: Yes (Hospitalization, Other)
  Sender: FDA-Public Use
  Company Number: AUR-APL-2009-00116

PATIENT
  Age: 51 Year
  Sex: Male

DRUGS (6)
  1. VITAMINS (VITAMINS /90003601/) [Concomitant]
  2. METFFORMIN HYDROCHLORIDE [Suspect]
     Indication: BLOOD GLUCOSE INCREASED
     Dosage: (850 MG,1 D)
  3. INSULIN (INSULIN) [Concomitant]
  4. REPAGLINIDE [Suspect]
     Indication: PRODUCT USED FOR UNKNOWN INDICATION
  5. AMLODIPINE [Concomitant]
  6. ASPIRIN [Concomitant]

REACTIONS (8)
  - MYOCLONUS [None]
  - GAIT DISTURBANCE [None]
  - INTRACRANIAL PRESSURE INCREASED [None]
  - BLOOD GLUCOSE INCREASED [None]
  - TRISMUS [None]
  - HEMIPARESIS [None]
  - DYSARTHRIA [None]
  - BLOOD PRESSURE INCREASED [None]
